FAERS Safety Report 10422958 (Version 2)
Quarter: 2014Q3

REPORT INFORMATION
  Report Type: Spontaneous
  Country: US (occurrence: US)
  Receive Date: 20140902
  Receipt Date: 20140910
  Transmission Date: 20150326
  Serious: Yes (Life-Threatening, Hospitalization)
  Sender: FDA-Public Use
  Company Number: US-MERCK-1408USA013769

PATIENT
  Age: 72 Year
  Sex: Female
  Weight: 97.52 kg

DRUGS (2)
  1. TEMODAR [Suspect]
     Active Substance: TEMOZOLOMIDE
     Indication: SARCOMA
     Dosage: 20 MG, ONCE DAILY
     Route: 048
     Dates: start: 20140716, end: 20140819
  2. TEMODAR [Suspect]
     Active Substance: TEMOZOLOMIDE
     Indication: SARCOMA
     Dosage: 140 MG, ONCE DAILY
     Route: 048
     Dates: start: 20140716, end: 20140819

REACTIONS (1)
  - Oxygen saturation decreased [Not Recovered/Not Resolved]

NARRATIVE: CASE EVENT DATE: 20140819
